FAERS Safety Report 7514022-5 (Version None)
Quarter: 2011Q2

REPORT INFORMATION
  Report Type: 
  Country: None (occurrence: None)
  Receive Date: 20110531
  Receipt Date: 20110517
  Transmission Date: 20111010
  Serious: Yes (Hospitalization)
  Sender: FDA-Public Use
  Company Number: US-UCBSA-023726

PATIENT
  Sex: Female
  Weight: 50 kg

DRUGS (3)
  1. CIMZIA [Suspect]
     Route: 058
     Dates: start: 20090101, end: 20110218
  2. CIMZIA [Suspect]
     Indication: CROHN'S DISEASE
     Dosage: 3 DOSES
     Route: 058
     Dates: start: 20090827, end: 20090101
  3. ENTOCORT EC [Concomitant]
     Indication: CROHN'S DISEASE
     Route: 048
     Dates: start: 20090301

REACTIONS (2)
  - CROHN'S DISEASE [None]
  - ABSCESS [None]
